FAERS Safety Report 11969689 (Version 1)
Quarter: 2016Q1

REPORT INFORMATION
  Report Type: Spontaneous
  Country: US (occurrence: None)
  Receive Date: 20160127
  Receipt Date: 20160127
  Transmission Date: 20160526
  Serious: No
  Sender: FDA-Public Use
  Company Number: None

PATIENT
  Age: 53 Year
  Sex: Female
  Weight: 60.78 kg

DRUGS (3)
  1. NATURAL NERVE CALM [Concomitant]
  2. ADRENAL CALM [Concomitant]
  3. FOSAMAX [Suspect]
     Active Substance: ALENDRONATE SODIUM
     Indication: BONE DENSITY ABNORMAL
     Dosage: 1

REACTIONS (8)
  - Visual impairment [None]
  - Malaise [None]
  - Burning sensation [None]
  - Hypoacusis [None]
  - Movement disorder [None]
  - Feeling abnormal [None]
  - Bone pain [None]
  - Nervousness [None]
